FAERS Safety Report 11141071 (Version 1)
Quarter: 2015Q2

REPORT INFORMATION
  Report Type: Spontaneous
  Country: US (occurrence: US)
  Receive Date: 20150525
  Receipt Date: 20150525
  Transmission Date: 20150821
  Serious: No
  Sender: FDA-Public Use
  Company Number: US-JNJFOC-20140918434

PATIENT

DRUGS (1)
  1. RISPERDAL CONSTA [Suspect]
     Active Substance: RISPERIDONE
     Indication: PRODUCT USED FOR UNKNOWN INDICATION
     Dosage: 25 MG ON DAY 1, 25 MG ON DAY 8, 37.5 MG ON DAY 22 ONCE IN 2 WEEKS
     Route: 030

REACTIONS (1)
  - Prescribed overdose [Unknown]
